FAERS Safety Report 8530485-0 (Version None)
Quarter: 2012Q3

REPORT INFORMATION
  Report Type: 
  Country: None (occurrence: None)
  Receive Date: 20120723
  Receipt Date: 20120720
  Transmission Date: 20120928
  Serious: Yes (Death, Hospitalization)
  Sender: FDA-Public Use
  Company Number: IN-B.I. PHARMACEUTICALS,INC./RIDGEFIELD-2012-CS-01020IG

PATIENT
  Sex: Male
  Weight: 87 kg

DRUGS (3)
  1. AGGRENOX [Suspect]
     Indication: EPILEPSY
     Dosage: 25/200 MG; OD
     Route: 048
     Dates: start: 20090320, end: 20120704
  2. AGGRENOX [Suspect]
     Indication: BASAL GANGLIA INFARCTION
  3. AGGRENOX [Suspect]
     Indication: VASCULITIS

REACTIONS (2)
  - EPILEPSY [None]
  - DYSPNOEA [None]
